FAERS Safety Report 7966416-1 (Version None)
Quarter: 2011Q4

REPORT INFORMATION
  Report Type: 
  Country: None (occurrence: None)
  Receive Date: 20111208
  Receipt Date: 20111125
  Transmission Date: 20120403
  Serious: Yes (Hospitalization, Other)
  Sender: FDA-Public Use
  Company Number: CA-ROCHE-1017934

PATIENT
  Sex: Female

DRUGS (8)
  1. XOLAIR [Suspect]
     Indication: ASTHMA
     Route: 058
     Dates: start: 20110719
  2. ADVAIR DISKUS 100/50 [Concomitant]
  3. FLOVENT [Concomitant]
  4. PREDNISONE TAB [Concomitant]
  5. LOSEC (CANADA) [Concomitant]
  6. SINGULAIR [Concomitant]
  7. FLONASE [Concomitant]
  8. VENTOLIN [Concomitant]

REACTIONS (3)
  - ASTHMA [None]
  - PAIN [None]
  - FATIGUE [None]
